FAERS Safety Report 9373593 (Version 1)
Quarter: 2013Q2

REPORT INFORMATION
  Report Type: Spontaneous
  Country: DE (occurrence: DE)
  Receive Date: 20130627
  Receipt Date: 20130627
  Transmission Date: 20140414
  Serious: Yes (Other)
  Sender: FDA-Public Use
  Company Number: GXKR2013DE002216

PATIENT
  Age: 58 Year
  Sex: Male
  Weight: 93 kg

DRUGS (3)
  1. CETIRIZINE [Suspect]
     Indication: SEASONAL ALLERGY
     Dosage: 10 MG, QD
     Route: 048
     Dates: start: 20130414, end: 20130428
  2. BISOPROLOL [Concomitant]
     Route: 048
  3. CODIOVAN [Concomitant]
     Route: 048

REACTIONS (1)
  - Hypertensive crisis [Not Recovered/Not Resolved]
